FAERS Safety Report 23504171 (Version 1)
Quarter: 2024Q1

REPORT INFORMATION
  Report Type: Spontaneous
  Country: US (occurrence: None)
  Receive Date: 20240208
  Receipt Date: 20240208
  Transmission Date: 20240409
  Serious: Yes (Death)
  Sender: FDA-Public Use
  Company Number: None

PATIENT
  Age: 16 Year
  Sex: Male
  Weight: 70.8 kg

DRUGS (10)
  1. ZOLEDRONIC ACID [Suspect]
     Active Substance: ZOLEDRONIC ACID
     Dosage: 0.88 MG ONCE INTRAVENOUS BOLUS
     Route: 040
     Dates: start: 20240124, end: 20240124
  2. CALCITRIOL [Concomitant]
     Active Substance: CALCITRIOL
  3. CALCIUM CARBONATE [Concomitant]
     Active Substance: CALCIUM CARBONATE
  4. LISINOPRIL [Concomitant]
     Active Substance: LISINOPRIL
  5. CARVEDILOL [Concomitant]
     Active Substance: CARVEDILOL
  6. PREDNISONE [Concomitant]
     Active Substance: PREDNISONE
  7. ALBUTEROL [Concomitant]
     Active Substance: ALBUTEROL
  8. FLUTICASONE [Concomitant]
     Active Substance: FLUTICASONE
  9. LORATADINE [Concomitant]
     Active Substance: LORATADINE
  10. EPLERENONE [Concomitant]
     Active Substance: EPLERENONE

REACTIONS (2)
  - Cardiac arrest [None]
  - Infusion related reaction [None]

NARRATIVE: CASE EVENT DATE: 20240124
